FAERS Safety Report 10917458 (Version 1)
Quarter: 2015Q1

REPORT INFORMATION
  Report Type: Spontaneous
  Country: US (occurrence: None)
  Receive Date: 20150312
  Receipt Date: 20150312
  Transmission Date: 20150721
  Serious: No
  Sender: FDA-Public Use
  Company Number: None

PATIENT
  Age: 67 Year
  Sex: Female
  Weight: 46.27 kg

DRUGS (13)
  1. CINNAMON AND HONEY [Concomitant]
  2. XANAX [Concomitant]
     Active Substance: ALPRAZOLAM
  3. QUNOL ULTRA COQ10 [Concomitant]
  4. AIRBOURNE CHEWABLE TABLETS [Concomitant]
  5. MEDROL [Suspect]
     Active Substance: METHYLPREDNISOLONE
     Indication: PERIPHERAL SWELLING
     Dosage: 6 DAY 1; 5 DAY 2; 4 DAY 3; 3 DAY 4; 2 ON DAY 5: 1 DAY 6, 2 AFTER BREAKFAST, LUNCH, DINNER 1ST DAY; BY MOUTH; STILL HAVE BOX AND INSTRUCTIONS
     Route: 048
     Dates: start: 20130808, end: 20130813
  6. VITAMIN B2 [Concomitant]
     Active Substance: RIBOFLAVIN
  7. MAFNESIUM, CALM [Concomitant]
  8. MEDROL [Suspect]
     Active Substance: METHYLPREDNISOLONE
     Indication: LOCALISED INFECTION
     Dosage: 6 DAY 1; 5 DAY 2; 4 DAY 3; 3 DAY 4; 2 ON DAY 5: 1 DAY 6, 2 AFTER BREAKFAST, LUNCH, DINNER 1ST DAY; BY MOUTH; STILL HAVE BOX AND INSTRUCTIONS
     Route: 048
     Dates: start: 20130808, end: 20130813
  9. GINGO BILOBA [Concomitant]
  10. MEDROL [Suspect]
     Active Substance: METHYLPREDNISOLONE
     Indication: PAIN IN EXTREMITY
     Dosage: 6 DAY 1; 5 DAY 2; 4 DAY 3; 3 DAY 4; 2 ON DAY 5: 1 DAY 6, 2 AFTER BREAKFAST, LUNCH, DINNER 1ST DAY; BY MOUTH; STILL HAVE BOX AND INSTRUCTIONS
     Route: 048
     Dates: start: 20130808, end: 20130813
  11. HYDROCHLOROTHIAZIDE. [Concomitant]
     Active Substance: HYDROCHLOROTHIAZIDE
  12. MEDROL [Suspect]
     Active Substance: METHYLPREDNISOLONE
     Indication: SKIN LESION EXCISION
     Dosage: 6 DAY 1; 5 DAY 2; 4 DAY 3; 3 DAY 4; 2 ON DAY 5: 1 DAY 6, 2 AFTER BREAKFAST, LUNCH, DINNER 1ST DAY; BY MOUTH; STILL HAVE BOX AND INSTRUCTIONS
     Route: 048
     Dates: start: 20130808, end: 20130813
  13. METANX [Concomitant]
     Active Substance: LEVOMEFOLATE CALCIUM\METHYLCOBALAMIN\PYRIDOXAL PHOSPHATE ANHYDROUS

REACTIONS (12)
  - Ear pain [None]
  - Arthralgia [None]
  - Hypoaesthesia [None]
  - Chloasma [None]
  - Ear swelling [None]
  - Paraesthesia [None]
  - Ear discomfort [None]
  - Peripheral coldness [None]
  - Skin discolouration [None]
  - Drug hypersensitivity [None]
  - Tinnitus [None]
  - External ear disorder [None]

NARRATIVE: CASE EVENT DATE: 20130813
